FAERS Safety Report 5989316-5 (Version None)
Quarter: 2008Q4

REPORT INFORMATION
  Report Type: 
  Country: None (occurrence: None)
  Receive Date: 20081210
  Receipt Date: 20081204
  Transmission Date: 20090506
  Serious: Yes (Hospitalization)
  Sender: FDA-Public Use
  Company Number: FR-AVENTIS-200814268FR

PATIENT
  Age: 87 Year
  Sex: Female

DRUGS (13)
  1. LANTUS [Suspect]
     Route: 058
     Dates: start: 20081008, end: 20081024
  2. CIFLOX                             /00697201/ [Suspect]
     Dates: start: 20081011, end: 20081013
  3. ZITHROMAX [Suspect]
     Route: 048
     Dates: start: 20081016, end: 20081027
  4. LEVEMIR [Concomitant]
     Route: 058
     Dates: end: 20081028
  5. NOVORAPID [Concomitant]
     Route: 058
     Dates: end: 20081028
  6. ALLOPURINOL [Concomitant]
     Indication: DRUG USE FOR UNKNOWN INDICATION
     Route: 048
  7. ATARAX [Concomitant]
     Indication: DRUG USE FOR UNKNOWN INDICATION
  8. OMEPRAZOLE [Concomitant]
     Indication: DRUG USE FOR UNKNOWN INDICATION
  9. LEXOMIL [Concomitant]
     Indication: DRUG USE FOR UNKNOWN INDICATION
     Route: 048
  10. BISOPROLOL FUMARATE [Concomitant]
     Indication: DRUG USE FOR UNKNOWN INDICATION
     Dates: end: 20081028
  11. PULMICORT-100 [Concomitant]
     Indication: DRUG USE FOR UNKNOWN INDICATION
     Route: 055
  12. FLUINDIONE [Concomitant]
     Indication: DRUG USE FOR UNKNOWN INDICATION
     Route: 048
     Dates: end: 20081028
  13. CALCIPARINE [Concomitant]
     Indication: DRUG USE FOR UNKNOWN INDICATION
     Route: 058
     Dates: end: 20081028

REACTIONS (2)
  - ACUTE GENERALISED EXANTHEMATOUS PUSTULOSIS [None]
  - RASH [None]
